FAERS Safety Report 5853859-5 (Version None)
Quarter: 2008Q3

REPORT INFORMATION
  Report Type: 
  Country: None (occurrence: None)
  Receive Date: 20080822
  Receipt Date: 20080814
  Transmission Date: 20090109
  Serious: Yes (Other)
  Sender: FDA-Public Use
  Company Number: GB-JNJFOC-20080803829

PATIENT
  Age: 14 Year
  Sex: Male
  Weight: 46 kg

DRUGS (2)
  1. CONCERTA [Suspect]
     Indication: CONDUCT DISORDER
     Route: 048
  2. CONCERTA [Suspect]
     Indication: ATTENTION DEFICIT/HYPERACTIVITY DISORDER
     Route: 048

REACTIONS (3)
  - AUTOIMMUNE HEPATITIS [None]
  - EPISTAXIS [None]
  - VARICES OESOPHAGEAL [None]
